FAERS Safety Report 11047684 (Version 1)
Quarter: 2015Q2

REPORT INFORMATION
  Report Type: Report from Study
  Country: US (occurrence: US)
  Receive Date: 20150420
  Receipt Date: 20150420
  Transmission Date: 20150821
  Serious: Yes (Hospitalization)
  Sender: FDA-Public Use
  Company Number: US-SA-2015SA049549

PATIENT
  Sex: Female

DRUGS (2)
  1. LANTUS [Suspect]
     Active Substance: INSULIN GLARGINE
     Indication: DIABETES MELLITUS
     Dosage: VIALS
     Route: 065
  2. APIDRA [Suspect]
     Active Substance: INSULIN GLULISINE
     Dosage: VIALS
     Route: 065

REACTIONS (1)
  - Foot fracture [Unknown]
